APPROVED DRUG PRODUCT: OLOPATADINE HYDROCHLORIDE
Active Ingredient: OLOPATADINE HYDROCHLORIDE
Strength: 0.665MG/SPRAY
Dosage Form/Route: SPRAY, METERED;NASAL
Application: A091572 | Product #001 | TE Code: AB
Applicant: APOTEX INC
Approved: Oct 8, 2014 | RLD: No | RS: No | Type: RX